FAERS Safety Report 6382635-2 (Version None)
Quarter: 2009Q3

REPORT INFORMATION
  Report Type: 
  Country: None (occurrence: None)
  Receive Date: 20090924
  Receipt Date: 20090212
  Transmission Date: 20100115
  Serious: Yes (Other)
  Sender: FDA-Public Use
  Company Number: WAES 0902USA02161

PATIENT
  Age: 48 Year
  Sex: Female
  Weight: 70.7611 kg

DRUGS (5)
  1. VYTORIN [Suspect]
     Indication: CORONARY ARTERY DISEASE
     Dosage: 10-80 MG/HS/PO; 10-40 MG/DAILY/PO
     Route: 048
     Dates: end: 20081001
  2. VYTORIN [Suspect]
     Indication: LIPIDS
     Dosage: 10-80 MG/HS/PO; 10-40 MG/DAILY/PO
     Route: 048
     Dates: end: 20081001
  3. VYTORIN [Suspect]
     Indication: CORONARY ARTERY DISEASE
     Dosage: 10-80 MG/HS/PO; 10-40 MG/DAILY/PO
     Route: 048
     Dates: start: 20081001
  4. VYTORIN [Suspect]
     Indication: LIPIDS
     Dosage: 10-80 MG/HS/PO; 10-40 MG/DAILY/PO
     Route: 048
     Dates: start: 20081001
  5. GLUCOPHAGE [Concomitant]

REACTIONS (2)
  - MUSCLE SPASMS [None]
  - RHABDOMYOLYSIS [None]
